FAERS Safety Report 18217043 (Version 1)
Quarter: 2020Q3

REPORT INFORMATION
  Report Type: Spontaneous
  Country: FI (occurrence: FI)
  Receive Date: 20200901
  Receipt Date: 20200901
  Transmission Date: 20201103
  Serious: Yes (Other)
  Sender: FDA-Public Use
  Company Number: FI-SA-2020SA231883

PATIENT

DRUGS (3)
  1. DUPIXENT [Suspect]
     Active Substance: DUPILUMAB
     Dosage: 300 MG
     Route: 065
     Dates: start: 20200618, end: 20200618
  2. DUPIXENT [Suspect]
     Active Substance: DUPILUMAB
     Dosage: 300 MG
     Route: 065
     Dates: start: 20200528, end: 20200528
  3. DUPIXENT [Suspect]
     Active Substance: DUPILUMAB
     Indication: ASTHMA
     Dosage: 300 MG
     Route: 065
     Dates: start: 20200514, end: 20200514

REACTIONS (4)
  - General physical health deterioration [Unknown]
  - Arthralgia [Unknown]
  - Hypoaesthesia [Unknown]
  - Nerve root injury cervical [Unknown]

NARRATIVE: CASE EVENT DATE: 2020
